FAERS Safety Report 6235674-6 (Version None)
Quarter: 2009Q2

REPORT INFORMATION
  Report Type: 
  Country: None (occurrence: None)
  Receive Date: 20090616
  Receipt Date: 20090605
  Transmission Date: 20091009
  Serious: Yes (Hospitalization, Other)
  Sender: FDA-Public Use
  Company Number: SPV1-2009-01171

PATIENT
  Age: 59 Year
  Sex: Female
  Weight: 104.3 kg

DRUGS (13)
  1. FOSRENOL [Suspect]
     Indication: RENAL FAILURE CHRONIC
     Dosage: 1000 MG, WITH MEAL'S DAILY, ORAL
     Route: 048
     Dates: start: 20070101
  2. VITAMINS NOS (VITAMINS NOS) [Concomitant]
  3. NOVOLOG [Concomitant]
  4. DETEMIR [Concomitant]
  5. GABAPENTIN [Concomitant]
  6. PHOSLO [Concomitant]
  7. TICLOPIDINE HYDROCHLORIDE [Concomitant]
  8. WARFARIN SODIUM [Concomitant]
  9. ASPIRIN [Concomitant]
  10. LYRICA [Concomitant]
  11. METOPROLOL SUCCINATE [Concomitant]
  12. LIPITOR [Concomitant]
  13. SIMVASTATIN [Concomitant]

REACTIONS (5)
  - ARTERIOSCLEROTIC RETINOPATHY [None]
  - BLINDNESS UNILATERAL [None]
  - CORONARY ARTERY BYPASS [None]
  - CORONARY ARTERY OCCLUSION [None]
  - TUNNEL VISION [None]
